FAERS Safety Report 23585975 (Version 1)
Quarter: 2024Q1

REPORT INFORMATION
  Report Type: Spontaneous
  Country: US (occurrence: None)
  Receive Date: 20240229
  Receipt Date: 20240229
  Transmission Date: 20240409
  Serious: No
  Sender: FDA-Public Use
  Company Number: None

PATIENT
  Age: 84 Year
  Sex: Female

DRUGS (1)
  1. TEMOZOLOMIDE [Suspect]
     Active Substance: TEMOZOLOMIDE
     Indication: Lung neoplasm malignant
     Dates: start: 20240216, end: 20240229

REACTIONS (2)
  - Hospice care [None]
  - Therapy interrupted [None]

NARRATIVE: CASE EVENT DATE: 20240201
